FAERS Safety Report 14382256 (Version 4)
Quarter: 2018Q1

REPORT INFORMATION
  Report Type: Spontaneous
  Country: HU (occurrence: HU)
  Receive Date: 20180112
  Receipt Date: 20180213
  Transmission Date: 20180509
  Serious: Yes (Life-Threatening, Hospitalization, Other)
  Sender: FDA-Public Use
  Company Number: HU-PFIZER INC-2018017692

PATIENT
  Age: 59 Year
  Sex: Female

DRUGS (4)
  1. METOPROLOL. [Suspect]
     Active Substance: METOPROLOL
     Indication: TACHYCARDIA
     Dosage: UNK
     Route: 065
  2. VERAPAMIL [Suspect]
     Active Substance: VERAPAMIL HYDROCHLORIDE
     Indication: TACHYCARDIA
     Dosage: UNK
     Route: 065
  3. AMIODARONE HCL [Suspect]
     Active Substance: AMIODARONE HYDROCHLORIDE
     Indication: TACHYCARDIA
     Dosage: UNK
     Route: 065
  4. ADENOSIN [Suspect]
     Active Substance: ADENOSINE
     Indication: TACHYCARDIA
     Dosage: UNK
     Route: 065

REACTIONS (2)
  - Cardiogenic shock [Recovered/Resolved]
  - Sepsis [Recovered/Resolved]
